FAERS Safety Report 4980290-7 (Version None)
Quarter: 2006Q2

REPORT INFORMATION
  Report Type: 
  Country: None (occurrence: None)
  Receive Date: 20060420
  Receipt Date: 20060420
  Transmission Date: 20061013
  Serious: No
  Sender: FDA-Public Use
  Company Number: None

PATIENT
  Age: 51 Year
  Sex: Male
  Weight: 111.1313 kg

DRUGS (1)
  1. ZICAM NASAL GEL     ZINCUM GLUCONICUM MATRIX INITIATIVES, [Suspect]
     Indication: NASOPHARYNGITIS
     Dosage: 1 SPRAY PER NOSTRIL   1/DAY - 2 DAYS  NASAL
     Route: 045
     Dates: start: 20050504, end: 20050505

REACTIONS (4)
  - AGEUSIA [None]
  - ANOSMIA [None]
  - NASAL DISCOMFORT [None]
  - RHINALGIA [None]
